FAERS Safety Report 5857634-7 (Version None)
Quarter: 2008Q3

REPORT INFORMATION
  Report Type: 
  Country: None (occurrence: None)
  Receive Date: 20080825
  Receipt Date: 20080825
  Transmission Date: 20090109
  Serious: Yes (Hospitalization)
  Sender: FDA-Public Use
  Company Number: None

PATIENT
  Sex: Male
  Weight: 82.5 kg

DRUGS (9)
  1. DOCETAXEL [Suspect]
     Indication: NON-SMALL CELL LUNG CANCER
     Dosage: 35MG/M2, D1, D8, D15, IV
     Route: 042
  2. GLIPIZIDE [Concomitant]
  3. LISINOPRIL [Concomitant]
  4. METOPROLOL TARTRATE [Concomitant]
  5. CADUET [Concomitant]
  6. FLOMAX [Concomitant]
  7. INSULIN [Concomitant]
  8. JANUVIA [Concomitant]
  9. AVASTIN [Suspect]
     Dosage: 10MG/KG, D1, D15, IV

REACTIONS (2)
  - HYPOGLYCAEMIA [None]
  - UNRESPONSIVE TO STIMULI [None]
